FAERS Safety Report 9385870 (Version 2)
Quarter: 2013Q3

REPORT INFORMATION
  Report Type: Spontaneous
  Country: JP (occurrence: JP)
  Receive Date: 20130705
  Receipt Date: 20130717
  Transmission Date: 20140515
  Serious: Yes (Hospitalization, Other)
  Sender: FDA-Public Use
  Company Number: JP-009507513-1306JPN014792

PATIENT
  Age: 80 Year
  Sex: Male
  Weight: 61 kg

DRUGS (9)
  1. JANUVIA TABLETS 50MG [Suspect]
     Indication: TYPE 2 DIABETES MELLITUS
     Dosage: 50 MG, QD
     Route: 048
     Dates: start: 201209, end: 20130430
  2. NOVORAPID [Suspect]
     Indication: TYPE 2 DIABETES MELLITUS
     Dosage: MORNING 16 IU, 8 IN EVENING IU; TOTAL DAILY DOSE:24 (UNDER 1000UNIT)
     Route: 058
     Dates: start: 20120601, end: 20130429
  3. NOVORAPID [Suspect]
     Dosage: MORNING 16 IU, 8 IN EVENING IU; TOTAL DAILY DOSE:24 (UNDER 1000UNIT)
     Route: 058
     Dates: start: 20120601, end: 20130429
  4. NOVORAPID [Suspect]
     Dosage: MORNING 12 IU, 4 IN EVENING IU; TOTAL DAILY DOSE: 16 (UNDER 1000 UNITS)
     Route: 058
     Dates: start: 20130430, end: 20130501
  5. NOVORAPID [Suspect]
     Dosage: MORNING 12 IU, 4 IN EVENING IU; TOTAL DAILY DOSE: 16 (UNDER 1000 UNITS)
     Route: 058
     Dates: start: 20130430, end: 20130501
  6. UNISIA [Concomitant]
     Indication: HYPERTENSION
     Dosage: DAILY DOSAGE UNKNOWN
     Route: 048
     Dates: start: 2012
  7. HOKUNALIN [Concomitant]
     Indication: CHRONIC OBSTRUCTIVE PULMONARY DISEASE
     Dosage: FORMULATION: TAP
     Route: 062
     Dates: start: 2012
  8. SPIRIVA [Concomitant]
     Indication: CHRONIC OBSTRUCTIVE PULMONARY DISEASE
     Dosage: 18 MICROGRAM, QD
     Route: 055
     Dates: start: 2012
  9. ADALAT L [Concomitant]
     Indication: HYPERTENSION
     Dosage: 10 MG, QD
     Route: 048
     Dates: start: 2012

REACTIONS (2)
  - Anti-insulin antibody positive [Not Recovered/Not Resolved]
  - Hypoglycaemia [Recovered/Resolved]
